FAERS Safety Report 6120067-2 (Version None)
Quarter: 2009Q1

REPORT INFORMATION
  Report Type: 
  Country: None (occurrence: None)
  Receive Date: 20090311
  Receipt Date: 20090225
  Transmission Date: 20090719
  Serious: Yes (Disabling, Other)
  Sender: FDA-Public Use
  Company Number: 2009169732

PATIENT
  Age: 71 Year
  Sex: Female

DRUGS (1)
  1. FRAGMIN [Suspect]
     Indication: THROMBOSIS PROPHYLAXIS
     Dosage: 5000 IU,

REACTIONS (7)
  - ARACHNOIDITIS [None]
  - CAUDA EQUINA SYNDROME [None]
  - NERVE INJURY [None]
  - PAIN [None]
  - POST PROCEDURAL HAEMATOMA [None]
  - SPINAL COMPRESSION FRACTURE [None]
  - SPINAL CORD INJURY [None]
